FAERS Safety Report 12471161 (Version 2)
Quarter: 2016Q3

REPORT INFORMATION
  Report Type: Report from Study
  Country: US (occurrence: US)
  Receive Date: 20160616
  Receipt Date: 20160701
  Transmission Date: 20161109
  Serious: Yes (Hospitalization, Other)
  Sender: FDA-Public Use
  Company Number: US-ABBVIE-16K-163-1648249-00

PATIENT
  Age: 77 Year
  Sex: Female
  Weight: 54.03 kg

DRUGS (9)
  1. HUMIRA [Suspect]
     Active Substance: ADALIMUMAB
     Route: 058
  2. NEXIUM [Concomitant]
     Active Substance: ESOMEPRAZOLE MAGNESIUM
     Indication: GASTROOESOPHAGEAL REFLUX DISEASE
  3. ZOFRAN [Concomitant]
     Active Substance: ONDANSETRON HYDROCHLORIDE
     Indication: PRODUCT USED FOR UNKNOWN INDICATION
  4. HUMIRA [Suspect]
     Active Substance: ADALIMUMAB
     Route: 058
     Dates: end: 20160510
  5. HUMIRA [Suspect]
     Active Substance: ADALIMUMAB
     Indication: COLITIS ULCERATIVE
     Dosage: LOADING DOSE
     Route: 058
     Dates: start: 201412, end: 201412
  6. LEXAPRO [Concomitant]
     Active Substance: ESCITALOPRAM OXALATE
     Indication: PRODUCT USED FOR UNKNOWN INDICATION
  7. IRON [Concomitant]
     Active Substance: IRON
     Indication: PRODUCT USED FOR UNKNOWN INDICATION
  8. HUMIRA [Suspect]
     Active Substance: ADALIMUMAB
     Dosage: LOADING DOSE
     Route: 058
  9. TRAMADOL. [Concomitant]
     Active Substance: TRAMADOL
     Indication: PAIN

REACTIONS (17)
  - Diverticulum [Recovered/Resolved]
  - Hypotension [Recovered/Resolved]
  - Diarrhoea [Unknown]
  - Weight decreased [Not Recovered/Not Resolved]
  - Large intestinal ulcer [Recovered/Resolved]
  - Atelectasis [Not Recovered/Not Resolved]
  - Vomiting [Recovered/Resolved]
  - Sepsis [Recovered/Resolved]
  - Intra-abdominal fluid collection [Recovered/Resolved]
  - White blood cell count increased [Recovered/Resolved]
  - Dehydration [Recovered/Resolved]
  - Intestinal perforation [Recovered/Resolved]
  - Gastrointestinal wall thickening [Recovered/Resolved]
  - Pleural effusion [Not Recovered/Not Resolved]
  - Asthenia [Recovering/Resolving]
  - Gastrointestinal infection [Recovered/Resolved]
  - Intestinal ischaemia [Unknown]

NARRATIVE: CASE EVENT DATE: 20160510
